FAERS Safety Report 9601664 (Version 1)
Quarter: 2013Q4

REPORT INFORMATION
  Report Type: Spontaneous
  Country: GB (occurrence: None)
  Receive Date: 20131002
  Receipt Date: 20131002
  Transmission Date: 20140711
  Serious: Yes (Other)
  Sender: FDA-Public Use
  Company Number: AUR-APL-2013-07912

PATIENT
  Age: 26 Year
  Sex: Female
  Weight: 107 kg

DRUGS (8)
  1. MIRTAZAPINE (MIRTAZAPINE) [Suspect]
     Indication: PRODUCT USED FOR UNKNOWN INDICATION
     Dates: start: 20130822, end: 201309
  2. CETIRIZINE (CETIRIZINE) [Concomitant]
  3. CITALOPRAM (CITALOPRAM) [Concomitant]
  4. DEPO-PROVERA (MEDROXYPROGESTERONE ACETATE) [Concomitant]
  5. FERROUS SULPHATE (FERROUS SULFATE) [Concomitant]
  6. FLUOXETINE (FLUOXETINE) [Concomitant]
  7. MICONAZOLE (MICONAZOLE) [Concomitant]
  8. PROPRANOLOL (PROPRANOLOL) [Concomitant]

REACTIONS (1)
  - Hypoaesthesia [None]
